FAERS Safety Report 8282474-1 (Version None)
Quarter: 2012Q2

REPORT INFORMATION
  Report Type: 
  Country: None (occurrence: None)
  Receive Date: 20120413
  Receipt Date: 20120329
  Transmission Date: 20120825
  Serious: Yes (Hospitalization)
  Sender: FDA-Public Use
  Company Number: JP-AMGEN-US349949

PATIENT
  Age: 62 Year
  Sex: Female
  Weight: 39.993 kg

DRUGS (4)
  1. PREDNISOLONE [Concomitant]
     Dosage: UNK
     Route: 048
  2. ALENDRONATE SODIUM [Concomitant]
     Dosage: UNK
     Route: 048
  3. SULFASALAZINE [Concomitant]
     Dosage: UNK
     Route: 048
  4. ENBREL [Suspect]
     Indication: RHEUMATOID ARTHRITIS
     Dosage: 25 MG, 2 TIMES/WK
     Route: 058
     Dates: start: 20090326

REACTIONS (1)
  - PULMONARY TUBERCULOSIS [None]
